FAERS Safety Report 7397748-6 (Version None)
Quarter: 2011Q2

REPORT INFORMATION
  Report Type: 
  Country: None (occurrence: None)
  Receive Date: 20110406
  Receipt Date: 20110328
  Transmission Date: 20111010
  Serious: Yes (Other)
  Sender: FDA-Public Use
  Company Number: JP-BAXTER-2011BH008784

PATIENT
  Age: 29 Year
  Sex: Male
  Weight: 75 kg

DRUGS (4)
  1. ADONA [Concomitant]
     Route: 048
  2. ADVATE [Suspect]
     Indication: FACTOR VIII DEFICIENCY
     Route: 042
     Dates: start: 20070520
  3. TRANSAMIN [Concomitant]
     Route: 048
  4. NOVORAPID [Concomitant]
     Indication: DIABETES MELLITUS
     Route: 058

REACTIONS (1)
  - HEAD INJURY [None]
